FAERS Safety Report 5944247-1 (Version None)
Quarter: 2008Q4

REPORT INFORMATION
  Report Type: 
  Country: None (occurrence: None)
  Receive Date: 20081021
  Receipt Date: 20071102
  Transmission Date: 20090506
  Serious: Yes (Hospitalization)
  Sender: FDA-Public Use
  Company Number: HQWYE263920JUL04

PATIENT
  Age: 74 Year
  Sex: Female

DRUGS (2)
  1. PREMARIN [Suspect]
     Indication: OESTROGEN REPLACEMENT THERAPY
     Dosage: ORAL
     Route: 048
     Dates: start: 20000501, end: 20010501
  2. ESTRATAB [Suspect]
     Dosage: ORAL
     Route: 048
     Dates: start: 20000402

REACTIONS (1)
  - DEEP VEIN THROMBOSIS [None]
